FAERS Safety Report 7369498-3 (Version None)
Quarter: 2011Q1

REPORT INFORMATION
  Report Type: 
  Country: None (occurrence: None)
  Receive Date: 20110323
  Receipt Date: 20110309
  Transmission Date: 20110831
  Serious: Yes (Hospitalization)
  Sender: FDA-Public Use
  Company Number: DE-JNJFOC-20110304503

PATIENT
  Age: 33 Year
  Sex: Female
  Weight: 55 kg

DRUGS (8)
  1. REMICADE [Suspect]
     Indication: COLITIS ULCERATIVE
     Route: 042
  2. VALCYTE [Concomitant]
     Indication: COLITIS ULCERATIVE
     Route: 048
  3. PANTOZOL [Concomitant]
     Indication: COLITIS ULCERATIVE
     Route: 048
  4. PREDNISOLONE [Concomitant]
     Indication: COLITIS ULCERATIVE
     Route: 048
  5. PENTASA [Concomitant]
     Indication: COLITIS ULCERATIVE
     Route: 048
  6. MESALAMINE [Concomitant]
     Indication: COLITIS ULCERATIVE
     Route: 048
  7. CALCIUM CARBONATE [Concomitant]
     Indication: COLITIS ULCERATIVE
     Route: 048
  8. ENTOCORT EC [Concomitant]
     Indication: COLITIS ULCERATIVE
     Route: 048

REACTIONS (2)
  - COLITIS ULCERATIVE [None]
  - CYTOMEGALOVIRUS COLITIS [None]
